FAERS Safety Report 23958050 (Version 1)
Quarter: 2024Q2

REPORT INFORMATION
  Report Type: Report from Study
  Country: US (occurrence: US)
  Receive Date: 20240610
  Receipt Date: 20240610
  Transmission Date: 20240716
  Serious: Yes (Hospitalization)
  Sender: FDA-Public Use
  Company Number: US-JAZZ PHARMACEUTICALS-2024-US-008740

PATIENT
  Sex: Male
  Weight: 13.5 kg

DRUGS (1)
  1. EPIDIOLEX [Suspect]
     Active Substance: CANNABIDIOL
     Indication: Product used for unknown indication
     Dosage: .4 MILLILITER, BID, TAKE 0.4 ML TWICE DAILY FOR DAYS 1 THROUGH 7, THEN 0.8 ML TWICE DAILY FOR DAYS 8
     Route: 048
     Dates: start: 202405

REACTIONS (3)
  - Urine output decreased [Unknown]
  - Hypernatraemia [Unknown]
  - Rash [Recovering/Resolving]
